FAERS Safety Report 20951335 (Version 1)
Quarter: 2022Q2

REPORT INFORMATION
  Report Type: Spontaneous
  Country: US (occurrence: None)
  Receive Date: 20220610
  Receipt Date: 20220610
  Transmission Date: 20220721
  Serious: Yes (unspecified)
  Sender: FDA-Public Use
  Company Number: None

PATIENT
  Age: 53 Year
  Sex: Female
  Weight: 87.3 kg

DRUGS (1)
  1. REPATHA [Suspect]
     Active Substance: EVOLOCUMAB
     Indication: Myocardial ischaemia
     Dosage: OTHER FREQUENCY : EVERY 14 DAYS;?
     Route: 058

REACTIONS (3)
  - Rash [None]
  - Myalgia [None]
  - Pain [None]
